FAERS Safety Report 6105329-7 (Version None)
Quarter: 2009Q1

REPORT INFORMATION
  Report Type: 
  Country: None (occurrence: None)
  Receive Date: 20090227
  Receipt Date: 20081202
  Transmission Date: 20090719
  Serious: Yes (Hospitalization, Other)
  Sender: FDA-Public Use
  Company Number: RB-6831-2008

PATIENT
  Sex: Female
  Weight: 3.1 kg

DRUGS (7)
  1. SUBOXONE [Suspect]
     Indication: DRUG USE FOR UNKNOWN INDICATION
     Dosage: 8 MG TID TRANSPLACENTAL
     Route: 064
     Dates: start: 20080101, end: 20080406
  2. SUBUTEX [Suspect]
     Indication: DRUG USE FOR UNKNOWN INDICATION
     Dosage: 8 MG TID TRANSPLACENTAL
     Route: 064
     Dates: start: 20080407, end: 20081112
  3. ROBITUSSIN DM [Concomitant]
  4. ZITHROMAX [Concomitant]
  5. LAMICTAL [Concomitant]
  6. WELLBUTRIN [Concomitant]
  7. VITAMIN TAB [Concomitant]

REACTIONS (2)
  - DRUG EXPOSURE DURING PREGNANCY [None]
  - DRUG WITHDRAWAL SYNDROME NEONATAL [None]
